FAERS Safety Report 7922107-4 (Version None)
Quarter: 2011Q4

REPORT INFORMATION
  Report Type: 
  Country: None (occurrence: None)
  Receive Date: 20111117
  Receipt Date: 20110412
  Transmission Date: 20120403
  Serious: No
  Sender: FDA-Public Use
  Company Number: US-AMGEN-USASP2011019437

PATIENT
  Age: 51 Year
  Sex: Female

DRUGS (2)
  1. ENBREL [Suspect]
     Indication: RHEUMATOID ARTHRITIS
     Dosage: UNK
     Dates: start: 20100915, end: 20101201
  2. TREXALL [Concomitant]
     Dosage: 1 MG, QWK
     Dates: start: 20080101

REACTIONS (2)
  - FATIGUE [None]
  - PAIN [None]
